FAERS Safety Report 10346512 (Version 8)
Quarter: 2020Q2

REPORT INFORMATION
  Report Type: Spontaneous
  Country: CA (occurrence: CA)
  Receive Date: 20140729
  Receipt Date: 20200409
  Transmission Date: 20200713
  Serious: Yes (Other)
  Sender: FDA-Public Use
  Company Number: CA-ROCHE-1441765

PATIENT
  Age: 40 Year
  Sex: Female
  Weight: 109 kg

DRUGS (10)
  1. XOLAIR [Suspect]
     Active Substance: OMALIZUMAB
     Route: 058
     Dates: start: 20200302
  2. SINGULAIR [Concomitant]
     Active Substance: MONTELUKAST SODIUM
     Indication: PRODUCT USED FOR UNKNOWN INDICATION
     Route: 065
  3. XOLAIR [Suspect]
     Active Substance: OMALIZUMAB
     Route: 058
     Dates: start: 20170117
  4. XOLAIR [Suspect]
     Active Substance: OMALIZUMAB
     Route: 058
     Dates: start: 20171208
  5. XOLAIR [Suspect]
     Active Substance: OMALIZUMAB
     Route: 058
     Dates: start: 20200302
  6. ADVAIR HFA [Concomitant]
     Active Substance: FLUTICASONE PROPIONATE\SALMETEROL XINAFOATE
     Indication: PRODUCT USED FOR UNKNOWN INDICATION
     Route: 065
     Dates: start: 20110602
  7. THEOPHYLLINE [Concomitant]
     Active Substance: THEOPHYLLINE ANHYDROUS
     Indication: PRODUCT USED FOR UNKNOWN INDICATION
     Route: 065
  8. SALBUTAMOL [Concomitant]
     Active Substance: ALBUTEROL
     Indication: PRODUCT USED FOR UNKNOWN INDICATION
     Route: 065
  9. XOLAIR [Suspect]
     Active Substance: OMALIZUMAB
     Indication: ASTHMA
     Route: 058
     Dates: start: 20110602
  10. VENTOLIN [Concomitant]
     Active Substance: ALBUTEROL SULFATE
     Indication: PRODUCT USED FOR UNKNOWN INDICATION
     Route: 065

REACTIONS (21)
  - Chest discomfort [Unknown]
  - Cough [Recovering/Resolving]
  - Respiratory distress [Unknown]
  - Pulmonary function test decreased [Unknown]
  - Dust allergy [Unknown]
  - Lower respiratory tract infection [Unknown]
  - Sensitivity to weather change [Unknown]
  - Throat irritation [Unknown]
  - Sleep disorder [Unknown]
  - Weight increased [Unknown]
  - Forced expiratory volume decreased [Unknown]
  - Total lung capacity decreased [Unknown]
  - Forced vital capacity decreased [Unknown]
  - Feeling abnormal [Unknown]
  - Oropharyngeal pain [Unknown]
  - Wheezing [Unknown]
  - Asthma [Unknown]
  - Dyspnoea [Unknown]
  - Malaise [Unknown]
  - Perfume sensitivity [Unknown]
  - Incorrect dose administered [Unknown]

NARRATIVE: CASE EVENT DATE: 201401
